FAERS Safety Report 25755794 (Version 1)
Quarter: 2025Q3

REPORT INFORMATION
  Report Type: Spontaneous
  Country: US (occurrence: None)
  Receive Date: 20250902
  Receipt Date: 20250902
  Transmission Date: 20251020
  Serious: Yes (Life-Threatening)
  Sender: FDA-CTU
  Company Number: None

PATIENT
  Age: 21 Year
  Sex: Female

DRUGS (4)
  1. WEGOVY [Suspect]
     Active Substance: SEMAGLUTIDE
  2. ZEPBOUND [Suspect]
     Active Substance: TIRZEPATIDE
  3. ZEPBOUND [Concomitant]
     Active Substance: TIRZEPATIDE
  4. WEGOVY [Concomitant]
     Active Substance: SEMAGLUTIDE

REACTIONS (5)
  - Administration site pain [None]
  - Injection site rash [None]
  - Hypoacusis [None]
  - Tunnel vision [None]
  - Syncope [None]

NARRATIVE: CASE EVENT DATE: 20250829
